FAERS Safety Report 8879641 (Version 1)
Quarter: 2012Q4

REPORT INFORMATION
  Report Type: Report from Study
  Country: AT (occurrence: AT)
  Receive Date: 20121031
  Receipt Date: 20121031
  Transmission Date: 20130627
  Serious: Yes (Hospitalization)
  Sender: FDA-Public Use
  Company Number: PHHO2012AT015560

PATIENT
  Age: 57 Year
  Sex: Male
  Weight: 69 kg

DRUGS (3)
  1. CERTICAN [Suspect]
     Indication: RENAL TRANSPLANT
     Dosage: PRN oral BID
     Route: 048
     Dates: start: 20110718
  2. MYFORTIC [Suspect]
     Dosage: PRN oral BID
     Route: 048
     Dates: start: 20110405
  3. PREDNISOLONE [Suspect]
     Dosage: PRN oral QD
     Route: 048
     Dates: start: 20110407

REACTIONS (1)
  - Prostatitis [Recovered/Resolved]
